FAERS Safety Report 9385879 (Version 2)
Quarter: 2013Q3

REPORT INFORMATION
  Report Type: Report from Study
  Country: US (occurrence: US)
  Receive Date: 20130705
  Receipt Date: 20130808
  Transmission Date: 20140515
  Serious: No
  Sender: FDA-Public Use
  Company Number: US-009507513-1307USA002772

PATIENT
  Age: 32 Year
  Sex: Female

DRUGS (3)
  1. REBETOL [Suspect]
     Indication: HEPATITIS C
     Dosage: UNK
     Route: 048
     Dates: end: 201203
  2. PEGASYS [Suspect]
     Indication: HEPATITIS C
     Dosage: UNK
     Route: 058
     Dates: end: 201203
  3. MK-3949 [Concomitant]
     Indication: ASTHMA
     Dosage: UNK

REACTIONS (1)
  - Maternal exposure before pregnancy [Unknown]
